FAERS Safety Report 15696454 (Version 2)
Quarter: 2022Q3

REPORT INFORMATION
  Report Type: Spontaneous
  Country: GB (occurrence: GB)
  Receive Date: 20181206
  Receipt Date: 20220715
  Transmission Date: 20221026
  Serious: Yes (Disabling)
  Sender: FDA-Public Use
  Company Number: GB-ELI_LILLY_AND_COMPANY-GB200906006262

PATIENT
  Age: 73 Year
  Sex: Male
  Weight: 81.6 kg

DRUGS (14)
  1. ALIMTA [Suspect]
     Active Substance: PEMETREXED DISODIUM
     Indication: Mesothelioma
     Dosage: 1000 MG, UNKNOWN
     Route: 042
     Dates: start: 20090410, end: 20090716
  2. CARBOPLATIN [Suspect]
     Active Substance: CARBOPLATIN
     Indication: Mesothelioma
     Dosage: 660 MG, UNKNOWN
     Route: 042
     Dates: start: 20090410, end: 20090425
  3. CARBOPLATIN [Suspect]
     Active Substance: CARBOPLATIN
     Dosage: 660 MG, UNKNOWN
     Route: 042
     Dates: start: 20090410, end: 20090625
  4. ONDANSETRON [Concomitant]
     Active Substance: ONDANSETRON
     Indication: Supportive care
     Dosage: 8 MG, UNKNOWN
     Route: 042
     Dates: start: 20090410, end: 20090716
  5. ONDANSETRON [Concomitant]
     Active Substance: ONDANSETRON
     Indication: Chemotherapy
  6. DEXAMETHASONE [Concomitant]
     Active Substance: DEXAMETHASONE
     Indication: Chemotherapy
     Dosage: 4 MG, 2/D
     Route: 048
     Dates: start: 20090410, end: 20090717
  7. DEXAMETHASONE [Concomitant]
     Active Substance: DEXAMETHASONE
     Indication: Supportive care
  8. METOCLOPRAMIDE [Concomitant]
     Active Substance: METOCLOPRAMIDE
     Indication: Supportive care
     Dosage: 10 MG, 3/D
     Route: 048
     Dates: start: 20090410, end: 20090716
  9. METOCLOPRAMIDE [Concomitant]
     Active Substance: METOCLOPRAMIDE
     Indication: Chemotherapy
     Dosage: 10 MG, 3/D
     Route: 048
     Dates: start: 20090410, end: 20090617
  10. CHLORPHENIRAMINE [Concomitant]
     Active Substance: CHLORPHENIRAMINE
     Indication: Product used for unknown indication
     Dosage: 10 MG, UNK
     Route: 042
  11. HYDROCORTISONE [Concomitant]
     Active Substance: HYDROCORTISONE
     Indication: Product used for unknown indication
     Dosage: 200 MG, UNK
     Route: 042
  12. FOLIC ACID [Concomitant]
     Active Substance: FOLIC ACID
     Indication: Supportive care
     Dosage: 400 UG, DAILY
     Route: 048
     Dates: start: 20090403
  13. HYDROXOCOBALAMIN [Concomitant]
     Active Substance: HYDROXOCOBALAMIN
     Indication: Supportive care
     Dosage: 1 MG, WEEKLY (1/W)
     Route: 030
     Dates: start: 20090403
  14. HYDROXOCOBALAMIN [Concomitant]
     Active Substance: HYDROXOCOBALAMIN
     Indication: Chemotherapy

REACTIONS (3)
  - Flushing [Recovered/Resolved]
  - Abdominal pain upper [Recovered/Resolved]
  - Pruritus [Unknown]

NARRATIVE: CASE EVENT DATE: 20090625
